FAERS Safety Report 8559128-7 (Version None)
Quarter: 2012Q3

REPORT INFORMATION
  Report Type: 
  Country: None (occurrence: None)
  Receive Date: 20120802
  Receipt Date: 20120726
  Transmission Date: 20120928
  Serious: No
  Sender: FDA-Public Use
  Company Number: US-BIOGENIDEC-2012BI027748

PATIENT
  Age: 54 Year
  Sex: Male

DRUGS (2)
  1. AVONEX [Suspect]
     Indication: MULTIPLE SCLEROSIS
     Route: 030
  2. AVONEX [Suspect]
     Route: 030
     Dates: start: 20120302

REACTIONS (6)
  - MALAISE [None]
  - HEADACHE [None]
  - DIZZINESS [None]
  - MOBILITY DECREASED [None]
  - PARAESTHESIA [None]
  - HYPOAESTHESIA [None]
